FAERS Safety Report 16950572 (Version 1)
Quarter: 2019Q4

REPORT INFORMATION
  Report Type: Spontaneous
  Country: US (occurrence: US)
  Receive Date: 20191022
  Receipt Date: 20191022
  Transmission Date: 20200122
  Serious: No
  Sender: FDA-Public Use
  Company Number: None

PATIENT
  Sex: Female
  Weight: 57.15 kg

DRUGS (12)
  1. DICLOFENAC [Concomitant]
     Active Substance: DICLOFENAC
  2. ONDANSETRON [Concomitant]
     Active Substance: ONDANSETRON
  3. VALACYCLOVIR [Concomitant]
     Active Substance: VALACYCLOVIR HYDROCHLORIDE
  4. SUMATRIPTAN. [Concomitant]
     Active Substance: SUMATRIPTAN
  5. MECLIZINE [Concomitant]
     Active Substance: MECLIZINE HYDROCHLORIDE
  6. PROPRANOLOL [Concomitant]
     Active Substance: PROPRANOLOL HYDROCHLORIDE
  7. CALCIUM [Concomitant]
     Active Substance: CALCIUM
  8. TIZANIDINE. [Concomitant]
     Active Substance: TIZANIDINE
  9. CLOBETASOL PROPIONATE OINTMENT [Concomitant]
     Active Substance: CLOBETASOL PROPIONATE
  10. PARAGARD T 380A [Suspect]
     Active Substance: COPPER
  11. BOTOX [Concomitant]
     Active Substance: ONABOTULINUMTOXINA
  12. EMGALITY [Concomitant]
     Active Substance: GALCANEZUMAB-GNLM

REACTIONS (2)
  - Dyspareunia [None]
  - Device breakage [None]
